FAERS Safety Report 6877147-3 (Version None)
Quarter: 2010Q3

REPORT INFORMATION
  Report Type: 
  Country: None (occurrence: None)
  Receive Date: 20100727
  Receipt Date: 20100727
  Transmission Date: 20110219
  Serious: Yes (Other)
  Sender: FDA-Public Use
  Company Number: None

PATIENT
  Age: 33 Year
  Sex: Female
  Weight: 55.3388 kg

DRUGS (2)
  1. LUPRON DEPOT [Suspect]
     Indication: ENDOMETRIOSIS
     Dosage: UNSURE MONTHLY IM
     Route: 030
     Dates: start: 20000101
  2. LUPRON DEPOT [Suspect]
     Indication: PAIN
     Dosage: UNSURE MONTHLY IM
     Route: 030
     Dates: start: 20000101

REACTIONS (24)
  - BLADDER DISORDER [None]
  - BLOOD URINE PRESENT [None]
  - DYSPAREUNIA [None]
  - EAR INFECTION [None]
  - FATIGUE [None]
  - GASTROOESOPHAGEAL REFLUX DISEASE [None]
  - HAEMORRHAGE [None]
  - HYSTERECTOMY [None]
  - IMMUNE SYSTEM DISORDER [None]
  - INCORRECT DOSE ADMINISTERED [None]
  - INFLUENZA LIKE ILLNESS [None]
  - LYMPHADENOPATHY [None]
  - NAUSEA [None]
  - NEPHROLITHIASIS [None]
  - OFF LABEL USE [None]
  - PHARYNGITIS [None]
  - POST-TRAUMATIC STRESS DISORDER [None]
  - PRODUCT QUALITY ISSUE [None]
  - RECTAL PROLAPSE [None]
  - RECTOCELE [None]
  - STRESS [None]
  - TEMPOROMANDIBULAR JOINT SYNDROME [None]
  - TOOTH FRACTURE [None]
  - URINARY TRACT INFECTION [None]
